FAERS Safety Report 24682814 (Version 3)
Quarter: 2025Q1

REPORT INFORMATION
  Report Type: Spontaneous
  Country: US (occurrence: US)
  Receive Date: 20241201
  Receipt Date: 20250301
  Transmission Date: 20250409
  Serious: No
  Sender: SANOFI AVENTIS
  Company Number: US-SA-2024SA347759

PATIENT
  Age: 48 Year
  Sex: Male

DRUGS (2)
  1. DUPIXENT [Suspect]
     Active Substance: DUPILUMAB
     Indication: Neurodermatitis
     Route: 058
  2. DUPIXENT [Suspect]
     Active Substance: DUPILUMAB
     Dosage: 300 MG, QOW
     Route: 058

REACTIONS (11)
  - Sleep disorder due to a general medical condition [Not Recovered/Not Resolved]
  - Skin swelling [Unknown]
  - Condition aggravated [Unknown]
  - Depression [Unknown]
  - Pain in extremity [Unknown]
  - Bacterial infection [Unknown]
  - Neurodermatitis [Not Recovered/Not Resolved]
  - Skin lesion [Not Recovered/Not Resolved]
  - Wound infection [Not Recovered/Not Resolved]
  - Arthralgia [Unknown]
  - Injection site pain [Unknown]
